FAERS Safety Report 23163423 (Version 2)
Quarter: 2024Q1

REPORT INFORMATION
  Report Type: Spontaneous
  Country: US (occurrence: US)
  Receive Date: 20231109
  Receipt Date: 20240222
  Transmission Date: 20240410
  Serious: No
  Sender: FDA-Public Use
  Company Number: US-AMGEN-USASP2023199889

PATIENT
  Age: 55 Year
  Sex: Female

DRUGS (1)
  1. REPATHA [Suspect]
     Active Substance: EVOLOCUMAB
     Indication: Blood cholesterol increased
     Dosage: 420 MILLIGRAM, QMO
     Route: 058

REACTIONS (7)
  - SARS-CoV-2 test positive [Not Recovered/Not Resolved]
  - Wrong technique in product usage process [Unknown]
  - Drug dose omission by device [Unknown]
  - Injection site haemorrhage [Unknown]
  - Injection site pruritus [Unknown]
  - Product communication issue [Unknown]
  - Injection site mass [Unknown]

NARRATIVE: CASE EVENT DATE: 20231001
